FAERS Safety Report 10762340 (Version 1)
Quarter: 2015Q1

REPORT INFORMATION
  Report Type: Spontaneous
  Country: HK (occurrence: HK)
  Receive Date: 20150204
  Receipt Date: 20150204
  Transmission Date: 20150721
  Serious: Yes (Death, Other)
  Sender: FDA-Public Use
  Company Number: HK-SHIONOGI, INC-2009000579

PATIENT
  Age: 78 Year
  Sex: Male
  Weight: 50 kg

DRUGS (36)
  1. ALBUMIN [Concomitant]
     Active Substance: ALBUMIN (HUMAN)
     Indication: HYPOALBUMINAEMIA
     Route: 042
     Dates: start: 20091008, end: 20091009
  2. GELOFUSINE [Concomitant]
     Active Substance: GELATIN\SODIUM CHLORIDE
     Route: 042
     Dates: start: 20091020, end: 20091022
  3. VOLUVEN [Concomitant]
     Active Substance: HYDROXYETHYL STARCH 130/0.4
     Route: 042
     Dates: start: 20091008, end: 20091009
  4. FORTUM [Concomitant]
     Active Substance: CEFTAZIDIME
     Indication: PNEUMONIA
     Route: 042
     Dates: start: 20091020, end: 20091022
  5. FLUCONAZOLE. [Concomitant]
     Active Substance: FLUCONAZOLE
     Indication: PERITONITIS
     Route: 042
     Dates: start: 20091012, end: 20091022
  6. TAZOCIN [Concomitant]
     Active Substance: PIPERACILLIN SODIUM\TAZOBACTAM SODIUM
     Indication: PERITONITIS
     Route: 042
     Dates: start: 20091008, end: 20091008
  7. LASIX [Concomitant]
     Active Substance: FUROSEMIDE
     Indication: OEDEMA
     Route: 042
     Dates: start: 20091010, end: 20091010
  8. FLAGYL [Concomitant]
     Active Substance: METRONIDAZOLE\METRONIDAZOLE HYDROCHLORIDE
     Indication: PERITONITIS
     Route: 042
     Dates: start: 20091020, end: 20091022
  9. TIGECYCLINE [Concomitant]
     Active Substance: TIGECYCLINE
     Indication: PERITONITIS
     Route: 042
     Dates: start: 20091017, end: 20091017
  10. VITRIMIX [Concomitant]
     Dates: start: 20091010, end: 20091022
  11. VANCOMYCIN [Concomitant]
     Active Substance: VANCOMYCIN
     Route: 042
     Dates: start: 20091020, end: 20091022
  12. SODIUM BICARBONATE. [Concomitant]
     Active Substance: SODIUM BICARBONATE
     Route: 042
     Dates: start: 20091019, end: 20091019
  13. SODIUM BICARBONATE. [Concomitant]
     Active Substance: SODIUM BICARBONATE
     Route: 042
     Dates: start: 20091019, end: 20091019
  14. TIGECYCLINE [Concomitant]
     Active Substance: TIGECYCLINE
     Route: 042
     Dates: start: 20091017, end: 20091020
  15. ASPIRIN. [Concomitant]
     Active Substance: ASPIRIN
     Indication: MYOCARDIAL ISCHAEMIA
     Route: 048
     Dates: start: 20091013, end: 20091015
  16. PROPOFOL. [Concomitant]
     Active Substance: PROPOFOL
     Indication: SEDATION
     Route: 042
     Dates: start: 20091013, end: 20091015
  17. SODIUM BICARBONATE. [Concomitant]
     Active Substance: SODIUM BICARBONATE
     Route: 042
     Dates: start: 20091022, end: 20091022
  18. AMIODARONE [Concomitant]
     Active Substance: AMIODARONE
     Route: 042
     Dates: start: 20091010, end: 20091010
  19. ZINACEF [Concomitant]
     Active Substance: CEFUROXIME SODIUM
     Indication: PERITONITIS
     Route: 042
     Dates: start: 20091007, end: 20091008
  20. DORIPENEM [Suspect]
     Active Substance: DORIPENEM
  21. MORPHINE [Concomitant]
     Active Substance: MORPHINE
     Indication: PROCEDURAL PAIN
     Route: 042
     Dates: start: 20091010, end: 20091022
  22. LASIX [Concomitant]
     Active Substance: FUROSEMIDE
     Route: 042
     Dates: start: 20091010, end: 20091011
  23. GELOFUSINE [Concomitant]
     Active Substance: GELATIN\SODIUM CHLORIDE
     Route: 042
     Dates: start: 20091009, end: 20091009
  24. PETHIDINE [Concomitant]
     Active Substance: MEPERIDINE
     Indication: PROCEDURAL PAIN
     Route: 030
     Dates: start: 20091004, end: 20091008
  25. TRAMADOL [Concomitant]
     Active Substance: TRAMADOL
     Indication: PROCEDURAL PAIN
     Route: 060
     Dates: start: 20091005, end: 20091008
  26. RANITIDINE [Concomitant]
     Active Substance: RANITIDINE\RANITIDINE HYDROCHLORIDE
     Indication: PROPHYLAXIS
     Route: 042
     Dates: start: 20091008, end: 20091022
  27. VANCOMYCIN [Concomitant]
     Active Substance: VANCOMYCIN
     Route: 042
     Dates: start: 20091012, end: 20091017
  28. AMIODARONE [Concomitant]
     Active Substance: AMIODARONE
     Indication: ATRIAL FIBRILLATION
     Route: 042
     Dates: start: 20091012, end: 20091013
  29. FLAGYL [Concomitant]
     Active Substance: METRONIDAZOLE\METRONIDAZOLE HYDROCHLORIDE
     Route: 042
     Dates: start: 20091007, end: 20091008
  30. FENTANYL. [Concomitant]
     Active Substance: FENTANYL
     Indication: PROCEDURAL PAIN
     Dosage: DOSAGE FORM: SOLUTION
     Route: 042
     Dates: start: 20091019, end: 20091019
  31. AMIKACIN [Concomitant]
     Active Substance: AMIKACIN
     Indication: PERITONITIS
     Route: 042
     Dates: start: 20091017, end: 20091020
  32. DORIBAX [Suspect]
     Active Substance: DORIPENEM
     Indication: PRODUCT USED FOR UNKNOWN INDICATION
     Route: 041
     Dates: start: 20091009, end: 20091017
  33. HYDROCORTISONE. [Concomitant]
     Active Substance: HYDROCORTISONE
     Indication: SEPSIS
     Route: 042
     Dates: start: 20091008, end: 20091022
  34. VITAMIN K1 [Concomitant]
     Active Substance: PHYTONADIONE
     Indication: COAGULOPATHY
     Route: 042
     Dates: start: 20091010, end: 20091012
  35. SODIUM BICARBONATE. [Concomitant]
     Active Substance: SODIUM BICARBONATE
     Route: 042
     Dates: start: 20091019, end: 20091019
  36. DIGOXIN. [Concomitant]
     Active Substance: DIGOXIN
     Indication: ATRIAL FIBRILLATION
     Route: 042
     Dates: start: 20091013, end: 20091013

REACTIONS (8)
  - Impaired healing [None]
  - Renal impairment [None]
  - Thrombocytopenia [None]
  - Superinfection [Fatal]
  - Wound infection fungal [None]
  - Zygomycosis [None]
  - Multi-organ failure [Fatal]
  - Jaundice [None]

NARRATIVE: CASE EVENT DATE: 20091021
